FAERS Safety Report 20427797 (Version 6)
Quarter: 2022Q3

REPORT INFORMATION
  Report Type: Spontaneous
  Country: JP (occurrence: JP)
  Receive Date: 20220204
  Receipt Date: 20220822
  Transmission Date: 20221027
  Serious: Yes (Hospitalization)
  Sender: FDA-Public Use
  Company Number: JP-JNJFOC-20210958408

PATIENT
  Age: 74 Year
  Sex: Female
  Weight: 52.9 kg

DRUGS (29)
  1. TREMFYA [Suspect]
     Active Substance: GUSELKUMAB
     Indication: Pustulotic arthro-osteitis
     Dosage: CYCLIC TREATMENT DATES: 15-JAN-2019, 12-MAR-2019, 07-MAY-2019,
     Route: 058
     Dates: start: 20181218, end: 20181218
  2. TREMFYA [Suspect]
     Active Substance: GUSELKUMAB
     Indication: Pustulotic arthro-osteitis
     Route: 058
     Dates: start: 20190115, end: 20190115
  3. TREMFYA [Suspect]
     Active Substance: GUSELKUMAB
     Indication: Pustulotic arthro-osteitis
     Route: 058
     Dates: start: 20190312, end: 20190312
  4. TREMFYA [Suspect]
     Active Substance: GUSELKUMAB
     Indication: Pustulotic arthro-osteitis
     Dosage: DOSE UNKNOWN
     Route: 058
     Dates: start: 20190507, end: 20190507
  5. CYCLOSPORINE [Suspect]
     Active Substance: CYCLOSPORINE
     Indication: Product used for unknown indication
     Route: 048
     Dates: start: 20170824
  6. CYCLOSPORINE [Suspect]
     Active Substance: CYCLOSPORINE
     Route: 048
     Dates: start: 20180123
  7. CYCLOSPORINE [Suspect]
     Active Substance: CYCLOSPORINE
     Route: 048
     Dates: start: 20180731
  8. CYCLOSPORINE [Suspect]
     Active Substance: CYCLOSPORINE
     Route: 048
     Dates: start: 20180828
  9. CYCLOSPORINE [Suspect]
     Active Substance: CYCLOSPORINE
     Route: 048
     Dates: start: 20181218, end: 20190115
  10. CYCLOSPORINE [Suspect]
     Active Substance: CYCLOSPORINE
     Route: 048
     Dates: start: 20190205
  11. CYCLOSPORINE [Suspect]
     Active Substance: CYCLOSPORINE
     Indication: Pustulotic arthro-osteitis
     Route: 048
     Dates: start: 20170824, end: 2017
  12. CYCLOSPORINE [Suspect]
     Active Substance: CYCLOSPORINE
     Indication: Pustulotic arthro-osteitis
     Route: 048
     Dates: start: 2017, end: 2017
  13. CYCLOSPORINE [Suspect]
     Active Substance: CYCLOSPORINE
     Indication: Pustulotic arthro-osteitis
     Route: 048
     Dates: start: 2017
  14. CYCLOSPORINE [Suspect]
     Active Substance: CYCLOSPORINE
     Indication: Pustulotic arthro-osteitis
     Route: 048
     Dates: start: 20180123, end: 201801
  15. CYCLOSPORINE [Suspect]
     Active Substance: CYCLOSPORINE
     Indication: Pustulotic arthro-osteitis
     Route: 048
     Dates: start: 201801, end: 2018
  16. CYCLOSPORINE [Suspect]
     Active Substance: CYCLOSPORINE
     Indication: Pustulotic arthro-osteitis
     Route: 048
     Dates: start: 20180731, end: 2018
  17. CYCLOSPORINE [Suspect]
     Active Substance: CYCLOSPORINE
     Indication: Pustulotic arthro-osteitis
     Route: 048
     Dates: start: 20180828, end: 2018
  18. CYCLOSPORINE [Suspect]
     Active Substance: CYCLOSPORINE
     Indication: Pustulotic arthro-osteitis
     Route: 048
     Dates: start: 201810, end: 2018
  19. CYCLOSPORINE [Suspect]
     Active Substance: CYCLOSPORINE
     Indication: Pustulotic arthro-osteitis
     Route: 048
     Dates: start: 20181218, end: 20190115
  20. CYCLOSPORINE [Suspect]
     Active Substance: CYCLOSPORINE
     Indication: Pustulotic arthro-osteitis
     Route: 048
     Dates: start: 20190205
  21. RHEUMATREX [Concomitant]
     Active Substance: METHOTREXATE SODIUM
     Indication: Product used for unknown indication
     Route: 048
     Dates: start: 20170706
  22. RHEUMATREX [Concomitant]
     Active Substance: METHOTREXATE SODIUM
     Route: 048
     Dates: start: 20180123
  23. RHEUMATREX [Concomitant]
     Active Substance: METHOTREXATE SODIUM
     Route: 048
     Dates: start: 20180731
  24. RHEUMATREX [Concomitant]
     Active Substance: METHOTREXATE SODIUM
     Route: 048
     Dates: start: 20181218, end: 20190115
  25. MICARDIS [Concomitant]
     Active Substance: TELMISARTAN
     Indication: Hypertension
     Route: 048
     Dates: start: 20170926
  26. CELECOXIB [Concomitant]
     Active Substance: CELECOXIB
     Indication: Product used for unknown indication
     Route: 048
     Dates: start: 20171017
  27. REBAMIPIDE [Concomitant]
     Active Substance: REBAMIPIDE
     Indication: Product used for unknown indication
     Route: 048
     Dates: start: 20171017
  28. FOLIC ACID [Concomitant]
     Active Substance: FOLIC ACID
     Indication: Product used for unknown indication
     Route: 048
     Dates: start: 20170706
  29. LAMISIL [Concomitant]
     Active Substance: TERBINAFINE HYDROCHLORIDE
     Indication: Fungal infection
     Route: 048
     Dates: start: 20180911

REACTIONS (2)
  - Organising pneumonia [Recovered/Resolved]
  - Rash [Recovering/Resolving]

NARRATIVE: CASE EVENT DATE: 20190115
